FAERS Safety Report 23267264 (Version 2)
Quarter: 2023Q4

REPORT INFORMATION
  Report Type: Spontaneous
  Country: AR (occurrence: AR)
  Receive Date: 20231206
  Receipt Date: 20231207
  Transmission Date: 20240109
  Serious: Yes (Other)
  Sender: FDA-Public Use
  Company Number: AR-SA-SAC20231205000253

PATIENT
  Sex: Female

DRUGS (2)
  1. DUPIXENT [Suspect]
     Active Substance: DUPILUMAB
     Indication: Netherton^s syndrome
     Dosage: 300 MG, QOW
     Route: 058
     Dates: end: 20231028
  2. DUPIXENT [Suspect]
     Active Substance: DUPILUMAB
     Indication: Asthma

REACTIONS (9)
  - Pneumonia [Unknown]
  - Hypoaesthesia [Unknown]
  - Visual impairment [Unknown]
  - Gait disturbance [Unknown]
  - Oral pain [Unknown]
  - Myalgia [Unknown]
  - Arthralgia [Unknown]
  - Conjunctivitis [Unknown]
  - Product use in unapproved indication [Unknown]

NARRATIVE: CASE EVENT DATE: 20230918
